FAERS Safety Report 9613790 (Version 1)
Quarter: 2013Q4

REPORT INFORMATION
  Report Type: Spontaneous
  Country: IT (occurrence: IT)
  Receive Date: 20131010
  Receipt Date: 20131010
  Transmission Date: 20140711
  Serious: Yes (Hospitalization)
  Sender: FDA-Public Use
  Company Number: PHHY2013IT111497

PATIENT
  Age: 42 Year
  Sex: Female

DRUGS (3)
  1. IRBESARTAN [Suspect]
     Indication: HYPERTENSION
     Dosage: 150 MG,/DAY
  2. ETHINYLESTRADIOL+GESTODENE [Interacting]
     Indication: ORAL CONTRACEPTION
  3. CAMELLIA SINENSIS [Interacting]
     Dosage: 1 G/DAY

REACTIONS (6)
  - Toxicity to various agents [Unknown]
  - Hepatic failure [Unknown]
  - Autoimmune hepatitis [Unknown]
  - Jaundice [Unknown]
  - Hepatic necrosis [Unknown]
  - Drug interaction [Unknown]
